FAERS Safety Report 8579298-4 (Version None)
Quarter: 2012Q3

REPORT INFORMATION
  Report Type: 
  Country: None (occurrence: None)
  Receive Date: 20120731
  Receipt Date: 20120731
  Transmission Date: 20120928
  Serious: Yes (Other)
  Sender: FDA-Public Use
  Company Number: None

PATIENT
  Age: 35 Year
  Sex: Female
  Weight: 105.2345 kg

DRUGS (1)
  1. JANUVIA [Suspect]

REACTIONS (2)
  - IRRITABILITY [None]
  - ANGER [None]
